FAERS Safety Report 12458331 (Version 1)
Quarter: 2016Q2

REPORT INFORMATION
  Report Type: Other
  Country: GB (occurrence: GB)
  Receive Date: 20160613
  Receipt Date: 20160613
  Transmission Date: 20160815
  Serious: Yes (Other)
  Sender: FDA-Public Use
  Company Number: GB-CIPLA LTD.-2016GB06449

PATIENT

DRUGS (4)
  1. RISPERIDONE. [Suspect]
     Active Substance: RISPERIDONE
     Indication: SCHIZOPHRENIA
     Dosage: 4 MG, UNK
     Route: 048
     Dates: start: 20130409
  2. XEPLION [Suspect]
     Active Substance: PALIPERIDONE PALMITATE
     Indication: SCHIZOPHRENIA
     Dosage: 100 MG, UNK
     Route: 030
     Dates: start: 20130502
  3. RISPERIDONE. [Suspect]
     Active Substance: RISPERIDONE
     Dosage: 6 MG, DOSAGE FORM: UNSPECIFIED
     Route: 048
     Dates: start: 20130523
  4. XEPLION [Suspect]
     Active Substance: PALIPERIDONE PALMITATE
     Dosage: 50 MG, UNK
     Route: 030
     Dates: start: 20130509

REACTIONS (6)
  - Mental impairment [Unknown]
  - Hypokalaemia [Recovering/Resolving]
  - Incorrect dose administered [Unknown]
  - Renal impairment [Recovering/Resolving]
  - Drug dose omission [Unknown]
  - Blood prolactin increased [Not Recovered/Not Resolved]

NARRATIVE: CASE EVENT DATE: 20130430
